FAERS Safety Report 17508446 (Version 1)
Quarter: 2020Q1

REPORT INFORMATION
  Report Type: Report from Study
  Country: None (occurrence: AU)
  Receive Date: 20200306
  Receipt Date: 20200306
  Transmission Date: 20200409
  Serious: Yes (Other)
  Sender: FDA-Public Use
  Company Number: AU-ABBVIE-20K-008-3304428-00

PATIENT
  Age: 63 Year
  Sex: Female

DRUGS (1)
  1. HUMIRA [Suspect]
     Active Substance: ADALIMUMAB
     Indication: RHEUMATOID ARTHRITIS
     Route: 058
     Dates: start: 20190319

REACTIONS (4)
  - Arthropod bite [Recovering/Resolving]
  - Pain [Unknown]
  - Abscess rupture [Recovering/Resolving]
  - Suicide attempt [Recovered/Resolved]

NARRATIVE: CASE EVENT DATE: 201906
